FAERS Safety Report 20354344 (Version 2)
Quarter: 2022Q4

REPORT INFORMATION
  Report Type: Report from Study
  Country: US (occurrence: US)
  Receive Date: 20220120
  Receipt Date: 20221004
  Transmission Date: 20230113
  Serious: Yes (Hospitalization, Other)
  Sender: FDA-Public Use
  Company Number: US-ABBVIE-22K-163-4240291-00

PATIENT
  Age: 78 Year
  Sex: Male
  Weight: 87.996 kg

DRUGS (2)
  1. CREON [Suspect]
     Active Substance: PANCRELIPASE AMYLASE\PANCRELIPASE LIPASE\PANCRELIPASE PROTEASE
     Indication: Product used for unknown indication
     Dosage: 2 EACH MEAL
     Route: 048
  2. CREON [Suspect]
     Active Substance: PANCRELIPASE AMYLASE\PANCRELIPASE LIPASE\PANCRELIPASE PROTEASE
     Indication: Product used for unknown indication
     Dosage: 2 CAPSULES WITH EACH MEAL
     Route: 048
     Dates: start: 2019

REACTIONS (8)
  - Cerebrovascular accident [Recovered/Resolved]
  - Hospitalisation [Unknown]
  - Arterial injury [Unknown]
  - Carotid artery stent insertion [Unknown]
  - Hypoaesthesia [Unknown]
  - Cerebrovascular accident [Recovered/Resolved]
  - Therapeutic product effect decreased [Unknown]
  - Cerebrovascular accident [Recovered/Resolved]

NARRATIVE: CASE EVENT DATE: 20211216
